FAERS Safety Report 23069945 (Version 2)
Quarter: 2024Q1

REPORT INFORMATION
  Report Type: Spontaneous
  Country: US (occurrence: US)
  Receive Date: 20231016
  Receipt Date: 20240110
  Transmission Date: 20240410
  Serious: Yes (Life-Threatening, Other)
  Sender: FDA-Public Use
  Company Number: US-PFIZER INC-202300321004

PATIENT
  Age: 58 Year
  Sex: Female
  Weight: 86.168 kg

DRUGS (1)
  1. METHOTREXATE SODIUM [Suspect]
     Active Substance: METHOTREXATE SODIUM
     Indication: Rheumatoid arthritis
     Dosage: 6 TABLETS ONCE A WEEK
     Dates: start: 201701, end: 201706

REACTIONS (6)
  - Near death experience [Unknown]
  - Abnormal loss of weight [Unknown]
  - Swollen tongue [Recovered/Resolved]
  - Alopecia [Recovered/Resolved]
  - Rash pruritic [Recovered/Resolved]
  - Oral mucosal blistering [Recovered/Resolved]

NARRATIVE: CASE EVENT DATE: 20170301
